FAERS Safety Report 10163380 (Version 1)
Quarter: 2014Q2

REPORT INFORMATION
  Report Type: Not Available
  Country: AU (occurrence: AU)
  Receive Date: 20140509
  Receipt Date: 20140509
  Transmission Date: 20141212
  Serious: Yes (Other)
  Sender: FDA-Public Use
  Company Number: AU-IAC KOREA XML-GBR-2014-0018267

PATIENT
  Sex: Female
  Weight: 62 kg

DRUGS (3)
  1. MORPHINE SULFATE [Suspect]
     Indication: LABOUR PAIN
     Dosage: 10 MG, SINGLE
     Route: 065
     Dates: start: 20140307, end: 20140307
  2. MISOPROSTOL [Concomitant]
  3. SYNTOMETRINE                       /00145001/ [Concomitant]

REACTIONS (6)
  - Balance disorder [Recovered/Resolved]
  - Hallucination [Recovered/Resolved]
  - Disorientation [Recovered/Resolved]
  - Agitation [Recovered/Resolved]
  - Restlessness [Recovered/Resolved]
  - Slow speech [Recovered/Resolved]
